FAERS Safety Report 23894013 (Version 21)
Quarter: 2024Q4

REPORT INFORMATION
  Report Type: Report from Study
  Country: AU (occurrence: AU)
  Receive Date: 20240524
  Receipt Date: 20241017
  Transmission Date: 20250115
  Serious: Yes (Other)
  Sender: JOHNSON AND JOHNSON
  Company Number: AU-JNJFOC-20240548883

PATIENT
  Age: 46 Year
  Sex: Female

DRUGS (13)
  1. SELEXIPAG [Suspect]
     Active Substance: SELEXIPAG
     Indication: Pulmonary arterial hypertension
     Route: 048
     Dates: start: 20240513
  2. SELEXIPAG [Suspect]
     Active Substance: SELEXIPAG
     Route: 048
  3. SELEXIPAG [Suspect]
     Active Substance: SELEXIPAG
     Dosage: 400 MCG IN THE MORNING AND 600MCG IN THE EVENING
     Route: 048
     Dates: start: 20240603
  4. SELEXIPAG [Suspect]
     Active Substance: SELEXIPAG
     Route: 048
     Dates: start: 20240614
  5. SELEXIPAG [Suspect]
     Active Substance: SELEXIPAG
     Dosage: 600MCG IN THE MORNING AND 800MCG IN THE EVENING
     Route: 048
     Dates: start: 20240621
  6. SELEXIPAG [Suspect]
     Active Substance: SELEXIPAG
     Dosage: USING 800MCG TABLET X1 AND 200MCG TABLET X1
     Route: 048
     Dates: start: 20240719
  7. SELEXIPAG [Suspect]
     Active Substance: SELEXIPAG
     Dosage: 800MCG TABLET X1 AND 200MCG TABLETS X2
     Route: 048
     Dates: start: 20240809
  8. SELEXIPAG [Suspect]
     Active Substance: SELEXIPAG
     Dosage: 1400MCG BD (800MCG X 1AND 200MCG  TABLETS X3)
     Route: 048
     Dates: start: 20240822
  9. SELEXIPAG [Suspect]
     Active Substance: SELEXIPAG
     Dosage: 1600MCG IN THE EVENINGS (800MCG TABLETS X 1 AND 200MCG TABLETS X4) AND 1400MCGS IN THE MORNINGS (800
     Route: 048
  10. SELEXIPAG [Suspect]
     Active Substance: SELEXIPAG
     Route: 048
     Dates: start: 20240930
  11. MACITENTAN [Suspect]
     Active Substance: MACITENTAN
     Indication: Pulmonary arterial hypertension
     Route: 048
     Dates: start: 2022
  12. SILDENAFIL [Concomitant]
     Active Substance: SILDENAFIL
     Indication: Pulmonary arterial hypertension
     Route: 048
     Dates: start: 2022
  13. FUROSEMIDE [Concomitant]
     Active Substance: FUROSEMIDE
     Indication: Pulmonary arterial hypertension
     Dosage: 1/2 A 40MG TABLET DAILY
     Route: 048

REACTIONS (15)
  - Cardiac flutter [Recovered/Resolved with Sequelae]
  - Diarrhoea [Recovered/Resolved]
  - Headache [Recovered/Resolved with Sequelae]
  - Nausea [Recovered/Resolved with Sequelae]
  - Decreased appetite [Recovered/Resolved]
  - Burning sensation [Recovered/Resolved]
  - Dizziness [Recovered/Resolved]
  - Orthostatic hypotension [Recovered/Resolved]
  - Product dose omission issue [Recovered/Resolved]
  - Exercise tolerance increased [Unknown]
  - Underdose [Unknown]
  - Flushing [Not Recovered/Not Resolved]
  - Pain in jaw [Recovered/Resolved with Sequelae]
  - Oxygen saturation decreased [Unknown]
  - Rash pruritic [Recovered/Resolved]

NARRATIVE: CASE EVENT DATE: 20240511
